FAERS Safety Report 10732006 (Version 1)
Quarter: 2015Q1

REPORT INFORMATION
  Report Type: Spontaneous
  Country: AR (occurrence: AR)
  Receive Date: 20150123
  Receipt Date: 20150123
  Transmission Date: 20150721
  Serious: Yes (Other)
  Sender: FDA-Public Use
  Company Number: PHHY2015AR007466

PATIENT
  Age: 80 Year
  Sex: Male

DRUGS (1)
  1. EXELON PATCH [Suspect]
     Active Substance: RIVASTIGMINE
     Indication: AMNESIA
     Dosage: 1 DF, QD
     Route: 062
     Dates: start: 2005, end: 20150102

REACTIONS (1)
  - Drug dependence [Recovered/Resolved]

NARRATIVE: CASE EVENT DATE: 20150103
